FAERS Safety Report 18727707 (Version 1)
Quarter: 2021Q1

REPORT INFORMATION
  Report Type: Report from Study
  Country: KR (occurrence: KR)
  Receive Date: 20210112
  Receipt Date: 20210112
  Transmission Date: 20210419
  Serious: Yes (Hospitalization)
  Sender: FDA-Public Use
  Company Number: KR-ASTRAZENECA-2020SE01429

PATIENT
  Age: 762 Month
  Sex: Male

DRUGS (68)
  1. DURVALUMAB. [Suspect]
     Active Substance: DURVALUMAB
     Indication: TRANSITIONAL CELL CARCINOMA
     Route: 042
     Dates: start: 20200207, end: 20200207
  2. DURVALUMAB. [Suspect]
     Active Substance: DURVALUMAB
     Indication: TRANSITIONAL CELL CARCINOMA
     Route: 042
     Dates: start: 20200311, end: 20200311
  3. DURVALUMAB. [Suspect]
     Active Substance: DURVALUMAB
     Indication: TRANSITIONAL CELL CARCINOMA
     Route: 042
     Dates: start: 20200714, end: 20200714
  4. CISPLATIN. [Suspect]
     Active Substance: CISPLATIN
     Indication: TRANSITIONAL CELL CARCINOMA
     Route: 042
     Dates: start: 20191209, end: 20191209
  5. CISPLATIN. [Suspect]
     Active Substance: CISPLATIN
     Indication: TRANSITIONAL CELL CARCINOMA
     Route: 042
     Dates: start: 20200207, end: 20200207
  6. CISPLATIN. [Suspect]
     Active Substance: CISPLATIN
     Indication: TRANSITIONAL CELL CARCINOMA
     Route: 042
     Dates: start: 20200423, end: 20200423
  7. GEMCITABINE. [Suspect]
     Active Substance: GEMCITABINE
     Indication: TRANSITIONAL CELL CARCINOMA
     Route: 042
     Dates: start: 20200114, end: 20200114
  8. GEMCITABINE. [Suspect]
     Active Substance: GEMCITABINE
     Indication: TRANSITIONAL CELL CARCINOMA
     Route: 042
     Dates: start: 20200311, end: 20200311
  9. GEMCITABINE. [Suspect]
     Active Substance: GEMCITABINE
     Indication: TRANSITIONAL CELL CARCINOMA
     Route: 042
     Dates: start: 20200423, end: 20200423
  10. GEMCITABINE. [Suspect]
     Active Substance: GEMCITABINE
     Indication: TRANSITIONAL CELL CARCINOMA
     Route: 042
     Dates: start: 20200521, end: 20200521
  11. NOLTEC [Concomitant]
     Indication: ABDOMINAL DISCOMFORT
     Route: 048
     Dates: start: 20191219, end: 20191219
  12. LACTICARE LOTION 0.25% [Concomitant]
     Indication: RASH
     Dosage: 60.0G INTERMITTENT
     Route: 061
     Dates: start: 20191227, end: 20200101
  13. LACTICARE LOTION [Concomitant]
     Indication: RASH
     Dosage: 60.0MG INTERMITTENT
     Route: 061
     Dates: start: 20191227, end: 20200101
  14. GEMCITABINE. [Suspect]
     Active Substance: GEMCITABINE
     Indication: TRANSITIONAL CELL CARCINOMA
     Route: 042
     Dates: start: 20191209, end: 20191209
  15. GEMCITABINE. [Suspect]
     Active Substance: GEMCITABINE
     Indication: TRANSITIONAL CELL CARCINOMA
     Route: 042
     Dates: start: 20191218, end: 20191218
  16. GEMCITABINE. [Suspect]
     Active Substance: GEMCITABINE
     Indication: TRANSITIONAL CELL CARCINOMA
     Route: 042
     Dates: start: 20200207, end: 20200207
  17. DEXAMETHASONE. [Concomitant]
     Active Substance: DEXAMETHASONE
     Indication: PROPHYLACTIC CHEMOTHERAPY
     Dosage: 5.0MG ONCE/SINGLE ADMINISTRATION
     Route: 042
     Dates: start: 20191209, end: 20191209
  18. DEXAMETHASONE. [Concomitant]
     Active Substance: DEXAMETHASONE
     Indication: ADVERSE DRUG REACTION
     Dosage: 8.0MG ONCE/SINGLE ADMINISTRATION
     Route: 048
     Dates: start: 20191210, end: 20191211
  19. ALOXI [Concomitant]
     Active Substance: PALONOSETRON HYDROCHLORIDE
     Indication: PREMEDICATION
     Dosage: 0.25MG ONCE/SINGLE ADMINISTRATION
     Route: 042
     Dates: start: 20191209, end: 20191209
  20. MANNITOL 20% [Concomitant]
     Active Substance: MANNITOL
     Indication: PROPHYLACTIC CHEMOTHERAPY
     Dosage: 2.00 BAG ONCE/SINGLE ADMINISTRATION
     Route: 042
     Dates: start: 20191209, end: 20191209
  21. MG.OXIDE [Concomitant]
     Indication: DECREASED APPETITE
     Dosage: 500.0MG INTERMITTENT
     Route: 048
     Dates: start: 20191210, end: 20191216
  22. SUNRHTYM [Concomitant]
     Indication: ARRHYTHMIA
     Route: 048
     Dates: start: 1993
  23. DURVALUMAB. [Suspect]
     Active Substance: DURVALUMAB
     Indication: TRANSITIONAL CELL CARCINOMA
     Route: 042
     Dates: start: 20200811, end: 20200811
  24. CISPLATIN. [Suspect]
     Active Substance: CISPLATIN
     Indication: TRANSITIONAL CELL CARCINOMA
     Route: 042
     Dates: start: 20200521, end: 20200521
  25. GEMCITABINE. [Suspect]
     Active Substance: GEMCITABINE
     Indication: TRANSITIONAL CELL CARCINOMA
     Route: 042
     Dates: start: 20200106, end: 20200106
  26. GEMCITABINE. [Suspect]
     Active Substance: GEMCITABINE
     Indication: TRANSITIONAL CELL CARCINOMA
     Route: 042
     Dates: start: 20200428, end: 20200428
  27. DURVALUMAB. [Suspect]
     Active Substance: DURVALUMAB
     Indication: TRANSITIONAL CELL CARCINOMA
     Route: 042
     Dates: start: 20200908, end: 20200908
  28. DURVALUMAB. [Suspect]
     Active Substance: DURVALUMAB
     Indication: TRANSITIONAL CELL CARCINOMA
     Route: 042
     Dates: start: 20201006, end: 20201006
  29. TREMELIMUMAB. [Suspect]
     Active Substance: TREMELIMUMAB
     Indication: TRANSITIONAL CELL CARCINOMA
     Route: 042
     Dates: start: 20191209, end: 20191209
  30. EMEND [Concomitant]
     Active Substance: APREPITANT
     Indication: PROPHYLACTIC CHEMOTHERAPY
     Dosage: 125.0MG ONCE/SINGLE ADMINISTRATION
     Route: 048
     Dates: start: 20191209, end: 20191209
  31. ALOXI [Concomitant]
     Active Substance: PALONOSETRON HYDROCHLORIDE
     Indication: CHEMOTHERAPY SIDE EFFECT PROPHYLAXIS
     Dosage: 0.25MG ONCE/SINGLE ADMINISTRATION
     Route: 042
     Dates: start: 20191209, end: 20191209
  32. DURVALUMAB. [Suspect]
     Active Substance: DURVALUMAB
     Indication: TRANSITIONAL CELL CARCINOMA
     Route: 042
     Dates: start: 20200521, end: 20200521
  33. DURVALUMAB. [Suspect]
     Active Substance: DURVALUMAB
     Indication: TRANSITIONAL CELL CARCINOMA
     Route: 042
     Dates: start: 20201201, end: 20201201
  34. TREMELIMUMAB. [Suspect]
     Active Substance: TREMELIMUMAB
     Indication: TRANSITIONAL CELL CARCINOMA
     Route: 042
     Dates: start: 20200106, end: 20200106
  35. TREMELIMUMAB. [Suspect]
     Active Substance: TREMELIMUMAB
     Indication: TRANSITIONAL CELL CARCINOMA
     Route: 042
     Dates: start: 20200207, end: 20200207
  36. CISPLATIN. [Suspect]
     Active Substance: CISPLATIN
     Indication: TRANSITIONAL CELL CARCINOMA
     Route: 042
     Dates: start: 20200106, end: 20200106
  37. PHAZYME COMPLEX [Concomitant]
     Indication: ABDOMINAL DISTENSION
     Dosage: 1.0DF ONCE/SINGLE ADMINISTRATION
     Route: 048
     Dates: start: 20191209, end: 20191209
  38. LOXFEN [Concomitant]
     Indication: TOOTH EXTRACTION
     Route: 048
     Dates: start: 20191206, end: 20191208
  39. ALMAGEL(AALMAGATE) [Concomitant]
     Indication: GASTRITIS PROPHYLAXIS
     Route: 048
     Dates: start: 20191206, end: 20191208
  40. EMEND [Concomitant]
     Active Substance: APREPITANT
     Indication: PROPHYLACTIC CHEMOTHERAPY
     Dosage: 80.0MG ONCE/SINGLE ADMINISTRATION
     Route: 048
     Dates: start: 20191210, end: 20191211
  41. EMEND [Concomitant]
     Active Substance: APREPITANT
     Indication: CHEMOTHERAPY SIDE EFFECT PROPHYLAXIS
     Dosage: 80.0MG ONCE/SINGLE ADMINISTRATION
     Route: 048
     Dates: start: 20191210, end: 20191211
  42. DEXAMETHASONE. [Concomitant]
     Active Substance: DEXAMETHASONE
     Indication: PROPHYLACTIC CHEMOTHERAPY
     Dosage: 8.0MG ONCE/SINGLE ADMINISTRATION
     Route: 048
     Dates: start: 20191210, end: 20191211
  43. DEXAMETHASONE. [Concomitant]
     Active Substance: DEXAMETHASONE
     Indication: ANTIMETROPIA
     Dosage: 8.0MG ONCE/SINGLE ADMINISTRATION
     Route: 048
     Dates: start: 20191210, end: 20191211
  44. MG.OXIDE [Concomitant]
     Indication: PROPHYLACTIC CHEMOTHERAPY
     Dosage: 500.0MG INTERMITTENT
     Route: 048
     Dates: start: 20191210, end: 20191216
  45. DULCOLAX SUP(BISACODYL) [Concomitant]
     Indication: CONSTIPATION
     Dosage: 10.0MG ONCE/SINGLE ADMINISTRATION
     Route: 054
     Dates: start: 20191211, end: 20191212
  46. MANNITOL 20% [Concomitant]
     Active Substance: MANNITOL
     Indication: PREMEDICATION
     Dosage: 2.00 BAG ONCE/SINGLE ADMINISTRATION
     Route: 042
     Dates: start: 20191209, end: 20191209
  47. MOTILITONE [Concomitant]
     Active Substance: HERBALS
     Indication: ABDOMINAL DISCOMFORT
     Route: 048
     Dates: start: 20191219, end: 20191219
  48. DURVALUMAB. [Suspect]
     Active Substance: DURVALUMAB
     Indication: TRANSITIONAL CELL CARCINOMA
     Route: 042
     Dates: start: 20200106, end: 20200106
  49. DURVALUMAB. [Suspect]
     Active Substance: DURVALUMAB
     Indication: TRANSITIONAL CELL CARCINOMA
     Route: 042
     Dates: start: 20201103, end: 20201103
  50. TREMELIMUMAB. [Suspect]
     Active Substance: TREMELIMUMAB
     Indication: TRANSITIONAL CELL CARCINOMA
     Route: 042
     Dates: start: 20200311, end: 20200311
  51. CISPLATIN. [Suspect]
     Active Substance: CISPLATIN
     Indication: TRANSITIONAL CELL CARCINOMA
     Route: 042
     Dates: start: 20200311, end: 20200312
  52. GEMCITABINE. [Suspect]
     Active Substance: GEMCITABINE
     Indication: TRANSITIONAL CELL CARCINOMA
     Route: 042
     Dates: start: 20200213, end: 20200213
  53. EMEND [Concomitant]
     Active Substance: APREPITANT
     Indication: CHEMOTHERAPY SIDE EFFECT PROPHYLAXIS
     Dosage: 125.0MG ONCE/SINGLE ADMINISTRATION
     Route: 048
     Dates: start: 20191209, end: 20191209
  54. EMEND [Concomitant]
     Active Substance: APREPITANT
     Indication: ANTIPLATELET THERAPY
     Dosage: 125.0MG ONCE/SINGLE ADMINISTRATION
     Route: 048
     Dates: start: 20191209, end: 20191209
  55. EMEND [Concomitant]
     Active Substance: APREPITANT
     Indication: ANTIPLATELET THERAPY
     Dosage: 80.0MG ONCE/SINGLE ADMINISTRATION
     Route: 048
     Dates: start: 20191210, end: 20191211
  56. DEXAMETHASONE. [Concomitant]
     Active Substance: DEXAMETHASONE
     Indication: ANTIMETROPIA
     Dosage: 5.0MG ONCE/SINGLE ADMINISTRATION
     Route: 042
     Dates: start: 20191209, end: 20191209
  57. DEXAMETHASONE. [Concomitant]
     Active Substance: DEXAMETHASONE
     Indication: ADVERSE DRUG REACTION
     Dosage: 5.0MG ONCE/SINGLE ADMINISTRATION
     Route: 042
     Dates: start: 20191209, end: 20191209
  58. DEXAMETHASONE. [Concomitant]
     Active Substance: DEXAMETHASONE
     Indication: CHEMOTHERAPY SIDE EFFECT PROPHYLAXIS
     Dosage: 5.0MG ONCE/SINGLE ADMINISTRATION
     Route: 042
     Dates: start: 20191209, end: 20191209
  59. DEXAMETHASONE. [Concomitant]
     Active Substance: DEXAMETHASONE
     Indication: CHEMOTHERAPY SIDE EFFECT PROPHYLAXIS
     Dosage: 8.0MG ONCE/SINGLE ADMINISTRATION
     Route: 048
     Dates: start: 20191210, end: 20191211
  60. ALOXI [Concomitant]
     Active Substance: PALONOSETRON HYDROCHLORIDE
     Indication: PROPHYLACTIC CHEMOTHERAPY
     Dosage: 0.25MG ONCE/SINGLE ADMINISTRATION
     Route: 042
     Dates: start: 20191209, end: 20191209
  61. MANNITOL 20% [Concomitant]
     Active Substance: MANNITOL
     Indication: CHEMOTHERAPY SIDE EFFECT PROPHYLAXIS
     Dosage: 2.00 BAG ONCE/SINGLE ADMINISTRATION
     Route: 042
     Dates: start: 20191209, end: 20191209
  62. DURVALUMAB. [Suspect]
     Active Substance: DURVALUMAB
     Indication: TRANSITIONAL CELL CARCINOMA
     Route: 042
     Dates: start: 20191209, end: 20191209
  63. DURVALUMAB. [Suspect]
     Active Substance: DURVALUMAB
     Indication: TRANSITIONAL CELL CARCINOMA
     Route: 042
     Dates: start: 20200619, end: 20200619
  64. GEMCITABINE. [Suspect]
     Active Substance: GEMCITABINE
     Indication: TRANSITIONAL CELL CARCINOMA
     Route: 042
     Dates: start: 20200408, end: 20200408
  65. GEMCITABINE. [Suspect]
     Active Substance: GEMCITABINE
     Indication: TRANSITIONAL CELL CARCINOMA
     Route: 042
     Dates: start: 20200605, end: 20200605
  66. PACLE [Concomitant]
     Indication: TOOTH EXTRACTION
     Route: 048
     Dates: start: 20191206, end: 20191208
  67. ALDRIN [Concomitant]
     Indication: PROPHYLACTIC CHEMOTHERAPY
     Route: 048
     Dates: start: 20191210, end: 20191211
  68. MG.OXIDE [Concomitant]
     Indication: CONSTIPATION
     Dosage: 500.0MG INTERMITTENT
     Route: 048
     Dates: start: 20191210, end: 20191216

REACTIONS (2)
  - Neutrophil count decreased [Recovered/Resolved]
  - Rash maculo-papular [Recovered/Resolved]

NARRATIVE: CASE EVENT DATE: 20191220
